FAERS Safety Report 5080546-6 (Version None)
Quarter: 2006Q3

REPORT INFORMATION
  Report Type: 
  Country: None (occurrence: None)
  Receive Date: 20060815
  Receipt Date: 20060801
  Transmission Date: 20061208
  Serious: Yes (Other)
  Sender: FDA-Public Use
  Company Number: DE-GILEAD-2006-0009990

PATIENT
  Age: 62 Year
  Sex: Male
  Weight: 83 kg

DRUGS (2)
  1. HEPSERA [Suspect]
     Indication: HEPATITIS B
  2. VIREAD [Suspect]

REACTIONS (4)
  - ALANINE AMINOTRANSFERASE INCREASED [None]
  - DRUG INEFFECTIVE [None]
  - RENAL FAILURE [None]
  - THERAPY NON-RESPONDER [None]
